FAERS Safety Report 6507140-1 (Version None)
Quarter: 2009Q4

REPORT INFORMATION
  Report Type: 
  Country: None (occurrence: None)
  Receive Date: 20091221
  Receipt Date: 20091210
  Transmission Date: 20100525
  Serious: Yes (Hospitalization)
  Sender: FDA-Public Use
  Company Number: PHHY2009JP47500

PATIENT
  Sex: Female
  Weight: 60 kg

DRUGS (4)
  1. DIOVAN HCT [Suspect]
     Indication: HYPERTENSION
     Dosage: 1 DOSAGE FORM DAILY
     Route: 048
     Dates: start: 20090313, end: 20091203
  2. CRESTOR [Concomitant]
     Indication: HYPERLIPIDAEMIA
     Dosage: 2.5 MG DAILY
     Route: 048
     Dates: start: 20090130
  3. NORVASC [Concomitant]
     Dosage: 5 MG DAILY
     Route: 048
     Dates: start: 20090313, end: 20090808
  4. NORVASC [Concomitant]
     Dosage: 2.5 MG DAILY
     Dates: start: 20090808, end: 20091204

REACTIONS (2)
  - GASTROINTESTINAL CARCINOMA [None]
  - MELAENA [None]
